FAERS Safety Report 11749999 (Version 1)
Quarter: 2015Q4

REPORT INFORMATION
  Report Type: Spontaneous
  Country: US (occurrence: None)
  Receive Date: 20151117
  Receipt Date: 20151117
  Transmission Date: 20160304
  Serious: Yes (Other)
  Sender: FDA-Public Use
  Company Number: None

PATIENT
  Age: 46 Year
  Sex: Female

DRUGS (1)
  1. COPAXONE [Suspect]
     Active Substance: GLATIRAMER ACETATE
     Indication: PRODUCT USED FOR UNKNOWN INDICATION
     Dosage: INJECTABLE
     Route: 058
     Dates: start: 201506

REACTIONS (3)
  - Laceration [None]
  - Hypotension [None]
  - Fall [None]

NARRATIVE: CASE EVENT DATE: 20151116
